FAERS Safety Report 11394139 (Version 1)
Quarter: 2015Q3

REPORT INFORMATION
  Report Type: Report from Study
  Country: GB (occurrence: GB)
  Receive Date: 20150819
  Receipt Date: 20150819
  Transmission Date: 20151125
  Serious: Yes (Other)
  Sender: FDA-Public Use
  Company Number: GB-ROCHE-1617529

PATIENT

DRUGS (1)
  1. BEVACIZUMAB [Suspect]
     Active Substance: BEVACIZUMAB
     Indication: NEOVASCULAR AGE-RELATED MACULAR DEGENERATION
     Route: 050

REACTIONS (24)
  - Angiopathy [Unknown]
  - Endocrine disorder [Unknown]
  - Hepatobiliary disease [Unknown]
  - Nervous system disorder [Unknown]
  - Uveitis [Unknown]
  - Myocardial infarction [Unknown]
  - Arterial thrombosis [Unknown]
  - Pulmonary embolism [Unknown]
  - Blood disorder [Unknown]
  - Gastrointestinal disorder [Unknown]
  - Musculoskeletal disorder [Unknown]
  - Skin disorder [Unknown]
  - Neoplasm [Unknown]
  - Respiratory disorder [Unknown]
  - Urinary tract disorder [Unknown]
  - Cardiac failure [Unknown]
  - Injury [Unknown]
  - Renal disorder [Unknown]
  - Cataract [Unknown]
  - Cerebrovascular accident [Unknown]
  - Episcleritis [Unknown]
  - Infection [Unknown]
  - Off label use [Unknown]
  - Cardiac disorder [Unknown]
